FAERS Safety Report 19317347 (Version 1)
Quarter: 2021Q2

REPORT INFORMATION
  Report Type: Spontaneous
  Country: US (occurrence: US)
  Receive Date: 20210528
  Receipt Date: 20210528
  Transmission Date: 20210717
  Serious: Yes (Other)
  Sender: FDA-Public Use
  Company Number: US-PURDUE-USA-2020-0183437

PATIENT
  Sex: Male

DRUGS (50)
  1. OXYCODONE HCL CR TABLETS (SIMILAR TO NDA 22?272) [Suspect]
     Active Substance: OXYCODONE HYDROCHLORIDE
     Indication: PRODUCT USED FOR UNKNOWN INDICATION
     Dosage: 80 MG, UNK
     Route: 048
  2. SOMA [Suspect]
     Active Substance: CARISOPRODOL
     Indication: PAIN IN EXTREMITY
  3. OXYCONTIN [Suspect]
     Active Substance: OXYCODONE HYDROCHLORIDE
     Indication: NECK PAIN
     Dosage: 60 MG, UNK
     Route: 048
  4. OXYCONTIN [Suspect]
     Active Substance: OXYCODONE HYDROCHLORIDE
     Dosage: 40 MG, TID
     Route: 048
  5. OXYCONTIN [Suspect]
     Active Substance: OXYCODONE HYDROCHLORIDE
     Dosage: 20 MG, Q12H
     Route: 048
  6. OXYCONTIN [Suspect]
     Active Substance: OXYCODONE HYDROCHLORIDE
     Dosage: 40 MG, TID
     Route: 048
  7. OXYCONTIN [Suspect]
     Active Substance: OXYCODONE HYDROCHLORIDE
     Dosage: 80 MG, BID
     Route: 048
  8. MORPHINE SULFATE EXTENDED?RELEASE TABLETS (RHODES 74?769, 74?862) [Suspect]
     Active Substance: MORPHINE SULFATE
     Indication: PRODUCT USED FOR UNKNOWN INDICATION
     Dosage: 30 MG, UNK
     Route: 048
  9. SUBOXONE [Suspect]
     Active Substance: BUPRENORPHINE HYDROCHLORIDE\NALOXONE HYDROCHLORIDE
     Indication: PRODUCT USED FOR UNKNOWN INDICATION
     Dosage: 8MG?2MG
     Route: 048
  10. FENTANYL. [Suspect]
     Active Substance: FENTANYL
     Dosage: 100 MCG/HR, Q72H
     Route: 062
  11. PERCOCET [Suspect]
     Active Substance: ACETAMINOPHEN\OXYCODONE HYDROCHLORIDE
     Indication: PAIN IN EXTREMITY
     Dosage: 10 MG, QID
     Route: 048
  12. OXYCONTIN [Suspect]
     Active Substance: OXYCODONE HYDROCHLORIDE
     Indication: PAIN IN EXTREMITY
     Dosage: 30 MG, UNK
     Route: 048
  13. OXYCONTIN [Suspect]
     Active Substance: OXYCODONE HYDROCHLORIDE
     Dosage: 40 MG, Q8H
     Route: 048
  14. HYSINGLA ER [Suspect]
     Active Substance: HYDROCODONE BITARTRATE
     Dosage: 40 MG, UNK
     Route: 048
  15. HYDROCODONE BITARTRATE AND ACETAMINOPHEN [Suspect]
     Active Substance: ACETAMINOPHEN\HYDROCODONE BITARTRATE
     Indication: PRODUCT USED FOR UNKNOWN INDICATION
     Dosage: 5 ? 325
     Route: 048
  16. OXYCODONE/ ACETAMINOPHEN TABLETS [Suspect]
     Active Substance: ACETAMINOPHEN\OXYCODONE HYDROCHLORIDE
     Indication: NECK PAIN
     Dosage: 1 TABLET, Q6H PRN (5MG?325MG)
     Route: 048
  17. OXYCODONE HYDROCHLORIDE (SIMILAR TO NDA 22?272) [Suspect]
     Active Substance: OXYCODONE HYDROCHLORIDE
     Dosage: 5 MG, 4?6HR PRN
     Route: 048
  18. OXYFAST [Suspect]
     Active Substance: OXYCODONE
     Indication: PRODUCT USED FOR UNKNOWN INDICATION
     Dosage: UNK
     Route: 065
  19. TRAMADOL. [Suspect]
     Active Substance: TRAMADOL
     Indication: PRODUCT USED FOR UNKNOWN INDICATION
     Dosage: UNK
     Route: 065
  20. METHADONE [Suspect]
     Active Substance: METHADONE HYDROCHLORIDE
     Indication: PRODUCT USED FOR UNKNOWN INDICATION
     Dosage: UNK
     Route: 065
  21. PERCOCET [Suspect]
     Active Substance: ACETAMINOPHEN\OXYCODONE HYDROCHLORIDE
     Indication: INJURY
  22. SOMA [Suspect]
     Active Substance: CARISOPRODOL
     Indication: BACK PAIN
     Dosage: 350 MG, TID
     Route: 048
  23. OXYCONTIN [Suspect]
     Active Substance: OXYCODONE HYDROCHLORIDE
     Indication: INJURY
     Dosage: 20 MG, Q8H
     Route: 048
  24. MS CONTIN [Suspect]
     Active Substance: MORPHINE SULFATE
     Indication: PRODUCT USED FOR UNKNOWN INDICATION
     Dosage: UNK
     Route: 048
  25. HYDROCODONE BITARTRATE AND ACETAMINOPHEN [Suspect]
     Active Substance: ACETAMINOPHEN\HYDROCODONE BITARTRATE
     Dosage: 10/325
     Route: 048
  26. OXYCODONE/ ACETAMINOPHEN TABLETS [Suspect]
     Active Substance: ACETAMINOPHEN\OXYCODONE HYDROCHLORIDE
     Dosage: 1 TABLET, Q6H (10MG?325MG)
     Route: 048
  27. OXYCODONE HYDROCHLORIDE (SIMILAR TO NDA 22?272) [Suspect]
     Active Substance: OXYCODONE HYDROCHLORIDE
     Indication: PRODUCT USED FOR UNKNOWN INDICATION
     Dosage: 15 MG, UNK
     Route: 048
  28. OXYCODONE HYDROCHLORIDE (SIMILAR TO NDA 22?272) [Suspect]
     Active Substance: OXYCODONE HYDROCHLORIDE
     Dosage: 5 MG, 6?8HR PRN
     Route: 048
  29. FENTANYL. [Suspect]
     Active Substance: FENTANYL
     Dosage: 50 MCG/HR, Q3D
     Route: 062
  30. PERCOCET [Suspect]
     Active Substance: ACETAMINOPHEN\OXYCODONE HYDROCHLORIDE
     Indication: BACK PAIN
     Dosage: 1 TABLET, Q6H (10MG?325MG)
     Route: 048
  31. SOMA [Suspect]
     Active Substance: CARISOPRODOL
     Indication: MUSCLE SPASMS
  32. OXYCONTIN [Suspect]
     Active Substance: OXYCODONE HYDROCHLORIDE
     Dosage: 10 MG, Q12H
     Route: 048
  33. OXYCODONE HCL CR TABLETS (SIMILAR TO NDA 22?272) [Suspect]
     Active Substance: OXYCODONE HYDROCHLORIDE
     Dosage: 40 MG, UNK
     Route: 048
  34. OXYCODONE HYDROCHLORIDE (SIMILAR TO NDA 22?272) [Suspect]
     Active Substance: OXYCODONE HYDROCHLORIDE
     Dosage: 10 MG, Q4H PRN
     Route: 048
  35. MORPHINE SULFATE (SIMILAR TO NDA 19?516) [Suspect]
     Active Substance: MORPHINE SULFATE
     Dosage: 15 MG, Q12H
     Route: 048
  36. XANAX [Suspect]
     Active Substance: ALPRAZOLAM
     Indication: PRODUCT USED FOR UNKNOWN INDICATION
     Dosage: UNK
     Route: 065
  37. OXYCONTIN [Suspect]
     Active Substance: OXYCODONE HYDROCHLORIDE
     Indication: BACK PAIN
     Dosage: 80 MG, DAILY (6 TIMES)
     Route: 048
  38. HYSINGLA ER [Suspect]
     Active Substance: HYDROCODONE BITARTRATE
     Indication: PRODUCT USED FOR UNKNOWN INDICATION
     Dosage: 30 MG, UNK
     Route: 048
  39. HYDROCODONE BITARTRATE AND ACETAMINOPHEN [Suspect]
     Active Substance: ACETAMINOPHEN\HYDROCODONE BITARTRATE
     Dosage: 10 ? 325
     Route: 048
  40. HYDROMORPHONE TABLETS [Suspect]
     Active Substance: HYDROMORPHONE
     Indication: PRODUCT USED FOR UNKNOWN INDICATION
     Dosage: 4 MG, UNK
     Route: 048
  41. OXYCODONE HCL TABLETS (RHODES 91?490) [Suspect]
     Active Substance: OXYCODONE HYDROCHLORIDE
     Indication: PRODUCT USED FOR UNKNOWN INDICATION
     Dosage: UNK
     Route: 048
  42. OXYCODONE/ ACETAMINOPHEN TABLETS [Suspect]
     Active Substance: ACETAMINOPHEN\OXYCODONE HYDROCHLORIDE
     Dosage: 1 TABLET, Q6H PRN (10MG?325MG)
     Route: 048
  43. OXYIR [Suspect]
     Active Substance: OXYCODONE HYDROCHLORIDE
     Indication: PRODUCT USED FOR UNKNOWN INDICATION
     Dosage: UNK
     Route: 065
  44. SOMA [Suspect]
     Active Substance: CARISOPRODOL
     Indication: INJURY
  45. FENTANYL. [Suspect]
     Active Substance: FENTANYL
     Indication: BACK PAIN
     Dosage: 75 MCG/HR, UNK
     Route: 062
  46. DILAUDID [Suspect]
     Active Substance: HYDROMORPHONE HYDROCHLORIDE
     Indication: PRODUCT USED FOR UNKNOWN INDICATION
     Dosage: UNK
     Route: 048
  47. HYDROCODONE BITARTRATE AND ACETAMINOPHEN [Suspect]
     Active Substance: ACETAMINOPHEN\HYDROCODONE BITARTRATE
     Dosage: 7.5/325
     Route: 048
  48. MORPHINE SULFATE EXTENDED?RELEASE TABLETS (RHODES 74?769, 74?862) [Suspect]
     Active Substance: MORPHINE SULFATE
     Dosage: 15MG/12
     Route: 048
  49. OXYCODONE/ ACETAMINOPHEN TABLETS [Suspect]
     Active Substance: ACETAMINOPHEN\OXYCODONE HYDROCHLORIDE
     Indication: BACK PAIN
     Dosage: 1 TABLET, Q6H PRN (7.5MG?325MG)
     Route: 048
  50. MORPHINE SULFATE (SIMILAR TO NDA 19?516) [Suspect]
     Active Substance: MORPHINE SULFATE
     Indication: PRODUCT USED FOR UNKNOWN INDICATION
     Dosage: 30 MG, Q8H
     Route: 048

REACTIONS (4)
  - Overdose [Unknown]
  - Drug dependence [Unknown]
  - Emotional distress [Unknown]
  - Drug tolerance increased [Unknown]

NARRATIVE: CASE EVENT DATE: 2002
